FAERS Safety Report 5895575-X (Version None)
Quarter: 2008Q3

REPORT INFORMATION
  Report Type: 
  Country: None (occurrence: None)
  Receive Date: 20080924
  Receipt Date: 20080115
  Transmission Date: 20090109
  Serious: Yes (Hospitalization)
  Sender: FDA-Public Use
  Company Number: US-ASTRAZENECA-2006UW08089

PATIENT
  Age: 677 Month
  Sex: Female
  Weight: 53.5 kg

DRUGS (10)
  1. SEROQUEL [Suspect]
     Indication: BIPOLAR DISORDER
     Route: 048
     Dates: start: 20010101, end: 20040701
  2. SEROQUEL [Suspect]
     Indication: INSOMNIA
     Route: 048
     Dates: start: 20010101, end: 20040701
  3. SEROQUEL [Suspect]
     Route: 048
  4. SEROQUEL [Suspect]
     Route: 048
  5. ABILIFY [Concomitant]
  6. SYNTHROID [Concomitant]
     Indication: HYPOTHYROIDISM
  7. LIPITOR [Concomitant]
     Indication: HYPERCHOLESTEROLAEMIA
  8. PREVACID [Concomitant]
  9. LITHIUM CARBONATE [Concomitant]
  10. REGLAN [Concomitant]
     Indication: ABDOMINAL DISCOMFORT

REACTIONS (4)
  - CHEST PAIN [None]
  - INCREASED APPETITE [None]
  - TYPE 2 DIABETES MELLITUS [None]
  - WEIGHT INCREASED [None]
